FAERS Safety Report 25550679 (Version 3)
Quarter: 2025Q4

REPORT INFORMATION
  Report Type: Spontaneous
  Country: US (occurrence: US)
  Receive Date: 20250714
  Receipt Date: 20251020
  Transmission Date: 20260117
  Serious: No
  Sender: CALLIDITAS THERAPEUTICS AB
  Company Number: US-Calliditas-2025CAL01634

PATIENT
  Age: 74 Year
  Sex: Female

DRUGS (21)
  1. TARPEYO [Suspect]
     Active Substance: BUDESONIDE
     Indication: IgA nephropathy
     Route: 048
     Dates: start: 20250425
  2. VASCEPA [Concomitant]
     Active Substance: ICOSAPENT ETHYL
  3. NEPHPLEX RX [Concomitant]
     Active Substance: ASCORBIC ACID\BIOTIN\COBALAMIN\FOLIC ACID\NIACINAMIDE\PANTOTHENIC ACID\PYRIDOXINE HYDROCHLORIDE\RIBO
  4. JARDIANCE [Concomitant]
     Active Substance: EMPAGLIFLOZIN
  5. ENTRESTO [Concomitant]
     Active Substance: SACUBITRIL\VALSARTAN
  6. ENTRESTO [Concomitant]
     Active Substance: SACUBITRIL\VALSARTAN
  7. TRADJENTA [Concomitant]
     Active Substance: LINAGLIPTIN
  8. REPAGLINIDE [Concomitant]
     Active Substance: REPAGLINIDE
  9. COZAAR [Concomitant]
     Active Substance: LOSARTAN POTASSIUM
  10. RYBELSUS [Concomitant]
     Active Substance: SEMAGLUTIDE
  11. TYLENOL [Concomitant]
     Active Substance: ACETAMINOPHEN
  12. NEURONTIN [Concomitant]
     Active Substance: GABAPENTIN
  13. MYRBETRIQ [Concomitant]
     Active Substance: MIRABEGRON
  14. OXYBUTYNIN [Concomitant]
     Active Substance: OXYBUTYNIN
  15. CELEBREX [Concomitant]
     Active Substance: CELECOXIB
  16. DICLOFENAC DIETHYLAMINE [Concomitant]
     Active Substance: DICLOFENAC DIETHYLAMINE
  17. PROCARDIA [Concomitant]
     Active Substance: NIFEDIPINE
  18. HYDRALAZINE [Concomitant]
     Active Substance: HYDRALAZINE HYDROCHLORIDE
  19. LABETALOL [Concomitant]
     Active Substance: LABETALOL
  20. ZENPEP [Concomitant]
     Active Substance: PANCRELIPASE AMYLASE\PANCRELIPASE LIPASE\PANCRELIPASE PROTEASE
     Dosage: 1500-47000 UNITS
  21. FILSPARI [Suspect]
     Active Substance: SPARSENTAN
     Indication: Product used for unknown indication

REACTIONS (4)
  - Swelling face [Recovered/Resolved]
  - Muscular weakness [Unknown]
  - Peripheral swelling [Recovered/Resolved]
  - Fatigue [Not Recovered/Not Resolved]
